FAERS Safety Report 5764665-4 (Version None)
Quarter: 2008Q2

REPORT INFORMATION
  Report Type: 
  Country: None (occurrence: None)
  Receive Date: 20080611
  Receipt Date: 20080603
  Transmission Date: 20081010
  Serious: Yes (Other)
  Sender: FDA-Public Use
  Company Number: PHHO2008FR07085

PATIENT
  Sex: Male

DRUGS (18)
  1. NEORAL [Suspect]
     Indication: RENAL TRANSPLANT
     Dosage: 200 MG / DAY
     Route: 048
     Dates: start: 20070226, end: 20080505
  2. CELLCEPT [Suspect]
     Indication: RENAL TRANSPLANT
     Dosage: 2 G / DAY
     Route: 048
     Dates: start: 20070226
  3. PREDNISONE TAB [Suspect]
     Indication: RENAL TRANSPLANT
     Dosage: UNK
     Dates: start: 20070228
  4. PREDNISONE TAB [Suspect]
     Dosage: UNK
     Route: 048
     Dates: start: 20070301
  5. BASILIXIMAB [Concomitant]
     Indication: RENAL TRANSPLANT
     Dosage: UNK
     Dates: start: 20070227, end: 20070227
  6. BASILIXIMAB [Concomitant]
     Dosage: UNK
     Dates: start: 20070302, end: 20070302
  7. METHYLPREDNISOLONE [Concomitant]
     Indication: RENAL TRANSPLANT
     Dosage: UNK
     Dates: start: 20070226, end: 20070227
  8. EPOGEN [Concomitant]
     Dosage: UNK
     Dates: start: 20070227
  9. LAXATIVES [Concomitant]
     Dosage: UNK
     Dates: start: 20070317
  10. DESLORATADINE [Concomitant]
     Dosage: UNK
     Dates: start: 20070303
  11. NEURONTIN [Concomitant]
     Dosage: UNK
     Dates: start: 20070303
  12. OFLOXACIN [Concomitant]
     Dosage: UNK
     Dates: start: 20070329
  13. RIVOTRIL [Concomitant]
     Dosage: UNK
     Dates: start: 20071025
  14. ZINC [Concomitant]
     Dosage: UNK
     Dates: start: 20071025
  15. AMLOR [Concomitant]
     Dosage: UNK
     Dates: start: 20071203
  16. SULFADIAZINE [Concomitant]
     Dosage: UNK
     Dates: start: 20071203
  17. FUROSEMIDE [Concomitant]
     Dosage: UNK
     Dates: start: 20080401
  18. FUSIDATE SODIUM [Concomitant]
     Dosage: UNK
     Dates: start: 20070302

REACTIONS (1)
  - KAPOSI'S SARCOMA [None]
